FAERS Safety Report 6444903-5 (Version None)
Quarter: 2009Q4

REPORT INFORMATION
  Report Type: 
  Country: None (occurrence: None)
  Receive Date: 20091118
  Receipt Date: 20091110
  Transmission Date: 20100525
  Serious: Yes (Other)
  Sender: FDA-Public Use
  Company Number: FR-ASTRAZENECA-2009SE12862

PATIENT
  Age: 670 Month
  Sex: Female
  Weight: 63 kg

DRUGS (1)
  1. CRESTOR [Suspect]
     Indication: HYPERCHOLESTEROLAEMIA
     Route: 048
     Dates: start: 20071001, end: 20080201

REACTIONS (1)
  - PNEUMONIA [None]
